FAERS Safety Report 6724256-5 (Version None)
Quarter: 2010Q2

REPORT INFORMATION
  Report Type: 
  Country: None (occurrence: None)
  Receive Date: 20100513
  Receipt Date: 20100504
  Transmission Date: 20101027
  Serious: Yes (Other)
  Sender: FDA-Public Use
  Company Number: US-ELI_LILLY_AND_COMPANY-US201003004969

PATIENT
  Sex: Female

DRUGS (3)
  1. BYETTA [Suspect]
     Indication: TYPE 2 DIABETES MELLITUS
  2. SODIUM BIPHOSPHATE [Concomitant]
  3. SODIUM PHOSPHATE [Concomitant]

REACTIONS (3)
  - MALAISE [None]
  - NAUSEA [None]
  - RENAL FAILURE [None]
